FAERS Safety Report 6772409-2 (Version None)
Quarter: 2010Q2

REPORT INFORMATION
  Report Type: 
  Country: None (occurrence: None)
  Receive Date: 20100616
  Receipt Date: 20090709
  Transmission Date: 20101027
  Serious: No
  Sender: FDA-Public Use
  Company Number: US-ASTRAZENECA-2009UW19359

PATIENT
  Sex: Male
  Weight: 114.8 kg

DRUGS (5)
  1. PULMICORT RESPULES [Suspect]
     Indication: ASTHMA
     Route: 055
     Dates: start: 20080101
  2. SINGULAIR [Concomitant]
  3. NASONEX [Concomitant]
  4. ALBUTEROL [Concomitant]
  5. PERFOROMIST [Concomitant]

REACTIONS (3)
  - ASTHMA [None]
  - DYSPNOEA [None]
  - PULMONARY FUNCTION TEST DECREASED [None]
